FAERS Safety Report 9739244 (Version 2)
Quarter: 2013Q4

REPORT INFORMATION
  Report Type: Spontaneous
  Country: US (occurrence: US)
  Receive Date: 20131209
  Receipt Date: 20131211
  Transmission Date: 20140711
  Serious: Yes (Other)
  Sender: FDA-Public Use
  Company Number: US-ROCHE-1311120

PATIENT
  Age: 59 Year
  Sex: Female

DRUGS (2)
  1. RITUXAN [Suspect]
     Indication: PRODUCT USED FOR UNKNOWN INDICATION
     Route: 065
  2. RITUXAN [Suspect]
     Route: 065

REACTIONS (2)
  - Loss of consciousness [Recovered/Resolved]
  - Product quality issue [Unknown]
